APPROVED DRUG PRODUCT: CORMAX
Active Ingredient: CLOBETASOL PROPIONATE
Strength: 0.05%
Dosage Form/Route: CREAM;TOPICAL
Application: A074220 | Product #001
Applicant: HIKMA PHARMACEUTICALS USA INC
Approved: May 16, 1997 | RLD: No | RS: No | Type: DISCN